FAERS Safety Report 8990340 (Version 1)
Quarter: 2012Q4

REPORT INFORMATION
  Report Type: 
  Country: GB (occurrence: GB)
  Receive Date: 20121228
  Receipt Date: 20121228
  Transmission Date: 20130627
  Serious: Yes (Disabling, Other)
  Sender: FDA-Public Use
  Company Number: GB-TEVA-377115ISR

PATIENT
  Age: 36 Year
  Sex: Female

DRUGS (6)
  1. HALOPERIDOL [Suspect]
     Indication: PSYCHOTIC DISORDER
     Route: 048
     Dates: start: 20120521, end: 20120920
  2. HALDOL [Suspect]
     Indication: PSYCHOTIC DISORDER
     Dosage: 10 Milligram Daily;
     Dates: start: 20120521, end: 20120920
  3. PROGESTERONE [Concomitant]
     Indication: PREMENSTRUAL SYNDROME
  4. MIRTAZAPINE [Concomitant]
  5. BUPRENORPHINE [Concomitant]
  6. DIAZEPAM [Concomitant]

REACTIONS (7)
  - Aphasia [Recovering/Resolving]
  - Muscle twitching [Recovering/Resolving]
  - Drooling [Recovering/Resolving]
  - Menstruation delayed [Recovering/Resolving]
  - Personality change [Recovering/Resolving]
  - Tongue disorder [Recovering/Resolving]
  - Aggression [Recovering/Resolving]
